FAERS Safety Report 20256161 (Version 2)
Quarter: 2022Q1

REPORT INFORMATION
  Report Type: Spontaneous
  Country: US (occurrence: US)
  Receive Date: 20211230
  Receipt Date: 20220106
  Transmission Date: 20220423
  Serious: Yes (Other)
  Sender: FDA-Public Use
  Company Number: US-PFIZER INC-202101857226

PATIENT
  Age: 15 Year
  Sex: Male

DRUGS (2)
  1. VINCRISTINE SULFATE [Suspect]
     Active Substance: VINCRISTINE SULFATE
     Indication: Hodgkin^s disease
     Dosage: UNK, CYCLIC
  2. BRENTUXIMAB [Concomitant]
     Active Substance: BRENTUXIMAB
     Indication: Hodgkin^s disease
     Dosage: UNK

REACTIONS (1)
  - Neuropathy peripheral [Unknown]
